FAERS Safety Report 9437434 (Version 1)
Quarter: 2013Q3

REPORT INFORMATION
  Report Type: Spontaneous
  Country: CH (occurrence: CH)
  Receive Date: 20130802
  Receipt Date: 20130802
  Transmission Date: 20140515
  Serious: Yes (Hospitalization, Disabling, Other)
  Sender: FDA-Public Use
  Company Number: CH-ASTRAZENECA-2013SE56939

PATIENT
  Age: 72 Year
  Sex: Female

DRUGS (10)
  1. FASLODEX [Suspect]
     Indication: BREAST CANCER FEMALE
     Route: 030
  2. FASLODEX [Suspect]
     Indication: BREAST CANCER FEMALE
     Route: 030
     Dates: start: 201012, end: 201301
  3. METHOTREXATE [Suspect]
     Indication: RHEUMATOID ARTHRITIS
     Route: 048
     Dates: start: 1996
  4. TAMOXIFEN [Suspect]
     Indication: BREAST CANCER FEMALE
     Route: 048
     Dates: start: 2008, end: 2010
  5. FEMARA [Suspect]
     Indication: BREAST CANCER FEMALE
     Route: 048
     Dates: start: 2004, end: 2008
  6. AFINITOR [Suspect]
     Indication: BREAST CANCER FEMALE
     Route: 048
  7. AROMASIN [Suspect]
     Indication: BREAST CANCER FEMALE
     Route: 048
     Dates: start: 2013
  8. ZOMETA [Suspect]
     Indication: BREAST CANCER FEMALE
     Route: 042
     Dates: start: 2004, end: 2013
  9. ZALDIAR [Concomitant]
     Indication: PAIN
     Route: 048
  10. TRAMAL [Concomitant]
     Indication: PAIN
     Route: 048

REACTIONS (2)
  - Osteonecrosis of jaw [Not Recovered/Not Resolved]
  - Metastases to bone [Unknown]
